FAERS Safety Report 18534062 (Version 1)
Quarter: 2020Q4

REPORT INFORMATION
  Report Type: Spontaneous
  Country: US (occurrence: US)
  Receive Date: 20201123
  Receipt Date: 20201123
  Transmission Date: 20210114
  Serious: Yes (Other)
  Sender: FDA-Public Use
  Company Number: US-PFIZER INC-2020455801

PATIENT
  Age: 86 Year
  Sex: Female
  Weight: 43.09 kg

DRUGS (1)
  1. XELJANZ XR [Suspect]
     Active Substance: TOFACITINIB CITRATE
     Indication: RHEUMATOID ARTHRITIS
     Dosage: 11 MG, DAILY (IN THE MORNING)
     Route: 048

REACTIONS (2)
  - Dementia [Not Recovered/Not Resolved]
  - Confusional state [Unknown]
